FAERS Safety Report 19884614 (Version 1)
Quarter: 2021Q3

REPORT INFORMATION
  Report Type: Spontaneous
  Country: US (occurrence: US)
  Receive Date: 20210927
  Receipt Date: 20210927
  Transmission Date: 20211014
  Serious: No
  Sender: FDA-Public Use
  Company Number: US-AMGEN-USASP2021146439

PATIENT
  Sex: Female

DRUGS (2)
  1. OTEZLA [Suspect]
     Active Substance: APREMILAST
     Indication: PALMOPLANTAR PUSTULOSIS
     Dosage: UNK
     Route: 065
     Dates: start: 2021
  2. OTEZLA [Suspect]
     Active Substance: APREMILAST
     Indication: OFF LABEL USE

REACTIONS (8)
  - Pain [Unknown]
  - Nausea [Unknown]
  - Retching [Unknown]
  - Hyperhidrosis [Unknown]
  - Headache [Unknown]
  - Feeling of body temperature change [Unknown]
  - Off label use [Unknown]
  - Chills [Unknown]

NARRATIVE: CASE EVENT DATE: 2021
